FAERS Safety Report 8926061 (Version 1)
Quarter: 2012Q4

REPORT INFORMATION
  Report Type: 
  Country: US (occurrence: US)
  Receive Date: 20121126
  Receipt Date: 20121126
  Transmission Date: 20130627
  Serious: Yes (Other)
  Sender: FDA-Public Use
  Company Number: US-BAYER-2012-075149

PATIENT
  Age: 79 Year
  Sex: Male

DRUGS (3)
  1. NEXAVAR [Suspect]
     Indication: LIVER, CANCER OF
     Dosage: 400 mg, BID
     Dates: start: 20120717, end: 20120726
  2. NEXAVAR [Suspect]
     Indication: LIVER, CANCER OF
     Dosage: 400 mg, BID
     Dates: start: 20120814
  3. COUMADIN [Concomitant]
     Dosage: UNK
     Dates: end: 2012

REACTIONS (8)
  - Squamous cell carcinoma [Not Recovered/Not Resolved]
  - Blood urine present [Recovering/Resolving]
  - Constipation [None]
  - Musculoskeletal pain [Not Recovered/Not Resolved]
  - Platelet count decreased [Recovering/Resolving]
  - Pain [None]
  - Diarrhoea [Recovering/Resolving]
  - Actinic keratosis [None]
